FAERS Safety Report 9188384 (Version 2)
Quarter: 2014Q1

REPORT INFORMATION
  Report Type: Report from Study
  Country: US (occurrence: US)
  Receive Date: 20130325
  Receipt Date: 20140303
  Transmission Date: 20141002
  Serious: Yes (Life-Threatening, Hospitalization)
  Sender: FDA-Public Use
  Company Number: PHEH2013US006549

PATIENT
  Age: 50 Year
  Sex: Female
  Weight: 49.89 kg

DRUGS (18)
  1. GILENYA [Suspect]
     Indication: MULTIPLE SCLEROSIS
     Dosage: 0.5 MG, QD
     Route: 048
     Dates: start: 20120614, end: 20130313
  2. DILANTIN [Suspect]
     Indication: CONVULSION
     Dosage: 3 DF, UNK, QPM
     Route: 048
  3. ZOLOFT [Concomitant]
     Dosage: 1 DF, QD
     Route: 048
  4. REQUIP [Concomitant]
     Dosage: 1 DF, TID
     Route: 048
  5. FLOMAX [Concomitant]
     Dosage: 1 DF, QD
     Route: 048
  6. AMANTADINE [Concomitant]
     Dosage: 1 DF, QD
     Route: 048
  7. LEVETIRACETAM [Concomitant]
     Dosage: 1 DF, BID
     Route: 048
  8. BACLOFEN [Concomitant]
     Dosage: 1 DF, BID
     Route: 048
  9. BACLOFEN [Concomitant]
     Dosage: 40 MG, UNK
  10. ADVAIR DISKUS [Concomitant]
     Dosage: 1 DF, BID
  11. METHADONE [Concomitant]
     Dosage: 1 DF, UNK
     Route: 048
  12. METHADONE [Concomitant]
     Dosage: 20 MG, Q6H
  13. ZANAFLEX [Concomitant]
  14. SANCTURA [Concomitant]
  15. KEPPRA [Concomitant]
  16. VITAMIN B12 [Concomitant]
  17. FOLIC ACID [Concomitant]
  18. QVAR [Concomitant]
     Dosage: 40 UG, UNK

REACTIONS (9)
  - Epilepsy [Recovering/Resolving]
  - Convulsion [Recovering/Resolving]
  - Tremor [Recovering/Resolving]
  - Foaming at mouth [Recovering/Resolving]
  - Dyspnoea [Recovering/Resolving]
  - Mood altered [Recovering/Resolving]
  - Poor quality sleep [Recovering/Resolving]
  - Loss of consciousness [Unknown]
  - Memory impairment [Unknown]
